FAERS Safety Report 8884168 (Version 1)
Quarter: 2012Q4

REPORT INFORMATION
  Report Type: 
  Country: US (occurrence: US)
  Receive Date: 20121102
  Receipt Date: 20121102
  Transmission Date: 20130627
  Serious: Yes (Other)
  Sender: FDA-Public Use
  Company Number: US-ROCHE-1150487

PATIENT

DRUGS (4)
  1. BEVACIZUMAB [Suspect]
     Indication: MENINGIOMA
     Route: 065
  2. ETOPOSIDE [Suspect]
     Indication: MENINGIOMA
     Route: 065
  3. TEMOZOLOMIDE [Suspect]
     Indication: MENINGIOMA
     Route: 065
  4. SIROLIMUS [Suspect]
     Indication: MENINGIOMA
     Route: 065

REACTIONS (5)
  - Haematochezia [Unknown]
  - Haematuria [Unknown]
  - Proteinuria [Unknown]
  - Hypertension [Unknown]
  - Cellulitis [Unknown]
